FAERS Safety Report 10335855 (Version 2)
Quarter: 2014Q3

REPORT INFORMATION
  Report Type: Spontaneous
  Country: US (occurrence: US)
  Receive Date: 20140723
  Receipt Date: 20140723
  Transmission Date: 20150326
  Serious: No
  Sender: FDA-Public Use
  Company Number: US-BRISTOL-MYERS SQUIBB COMPANY-19160514

PATIENT
  Age: 81 Year
  Sex: Female
  Weight: 81.18 kg

DRUGS (1)
  1. COUMADIN [Suspect]
     Active Substance: WARFARIN SODIUM
     Indication: ATRIAL FIBRILLATION
     Dates: start: 2006

REACTIONS (4)
  - Abdominal distension [Unknown]
  - Pain in extremity [Unknown]
  - Muscle spasms [Unknown]
  - Peripheral swelling [Unknown]
